FAERS Safety Report 18386761 (Version 4)
Quarter: 2021Q2

REPORT INFORMATION
  Report Type: Report from Study
  Country: FR (occurrence: FR)
  Receive Date: 20201015
  Receipt Date: 20210527
  Transmission Date: 20210717
  Serious: Yes (Hospitalization)
  Sender: FDA-Public Use
  Company Number: FR-PFIZER INC-2016-03057

PATIENT
  Age: 65 Year
  Sex: Female
  Weight: 79 kg

DRUGS (12)
  1. BIOCALYPTOL [PHOLCODINE] [Concomitant]
     Active Substance: PHOLCODINE
     Indication: COUGH
     Dosage: 1 SPOON, ON DEMAND
     Route: 048
     Dates: start: 20151127
  2. RIBOCICLIB. [Suspect]
     Active Substance: RIBOCICLIB
     Indication: MALIGNANT MELANOMA
     Dosage: 400 MG, 1X/DAY 21/28 DAYS
     Route: 048
     Dates: start: 20150606, end: 20160113
  3. LOPRIL [CAPTOPRIL] [Concomitant]
     Indication: PROPHYLAXIS
     Dosage: 25 MG, 1X/DAY
     Route: 048
     Dates: start: 20150914
  4. HYDROCORTISONE. [Concomitant]
     Active Substance: HYDROCORTISONE
     Indication: ADRENAL INSUFFICIENCY
     Dosage: 10 MG, 3X/DAY
     Route: 048
     Dates: start: 20120712
  5. MOPRAL [OMEPRAZOLE] [Concomitant]
     Active Substance: OMEPRAZOLE
     Indication: GASTROOESOPHAGEAL REFLUX DISEASE
     Dosage: 20 MG, 1X/DAY
     Route: 048
     Dates: start: 20151127
  6. RIBOCICLIB. [Suspect]
     Active Substance: RIBOCICLIB
     Dosage: 400 MG, 1X/DAY (3 WEEKS ON, 1 WEEK OFF)
     Route: 048
     Dates: start: 20160121, end: 20160216
  7. ENCORAFENIB [Suspect]
     Active Substance: ENCORAFENIB
     Indication: MALIGNANT MELANOMA
     Dosage: 100 MG, 1X/DAY
     Route: 048
     Dates: start: 20150606, end: 20160120
  8. PEVARYL [ECONAZOLE] [Concomitant]
     Indication: FUNGAL INFECTION
     Dosage: 1 APPLICATION, 1X/DAY
     Route: 061
     Dates: start: 20150125
  9. BINIMETINIB [Suspect]
     Active Substance: BINIMETINIB
     Indication: MALIGNANT MELANOMA
     Dosage: 30 MG, 2X/DAY
     Route: 048
     Dates: start: 20150606, end: 20160120
  10. ENCORAFENIB [Suspect]
     Active Substance: ENCORAFENIB
     Dosage: 100 MG, 1X/DAY, EVERY DAY
     Route: 048
     Dates: start: 20160121, end: 20160216
  11. BINIMETINIB [Suspect]
     Active Substance: BINIMETINIB
     Dosage: 30 MG, 2X/DAY, EVERY DAY
     Route: 048
     Dates: start: 20160121, end: 20160216
  12. LEVOTHYROX [Concomitant]
     Active Substance: LEVOTHYROXINE
     Indication: HYPOTHYROIDISM
     Dosage: 25 UG, 1X/DAY
     Route: 048
     Dates: start: 20120909

REACTIONS (1)
  - Renal failure [Recovered/Resolved]

NARRATIVE: CASE EVENT DATE: 20160216
